FAERS Safety Report 5209712-3 (Version None)
Quarter: 2007Q1

REPORT INFORMATION
  Report Type: 
  Country: None (occurrence: None)
  Receive Date: 20070116
  Receipt Date: 20070109
  Transmission Date: 20070707
  Serious: Yes (Hospitalization)
  Sender: FDA-Public Use
  Company Number: AU-BOEHRINGER INGELHEIM PHARMACEUTICALS, INC.-2007-BP-00348AU

PATIENT
  Sex: Male

DRUGS (9)
  1. CATAPRES [Suspect]
     Indication: ESSENTIAL HYPERTENSION
     Dates: end: 20060615
  2. BACTRIM DS [Suspect]
     Route: 048
     Dates: end: 20060615
  3. AVANDIA [Suspect]
     Indication: DIABETES MELLITUS
     Route: 048
     Dates: start: 20060301, end: 20060615
  4. AVAPRO [Suspect]
     Indication: ESSENTIAL HYPERTENSION
     Route: 048
     Dates: end: 20060615
  5. DIAMICRON MR [Suspect]
     Indication: DIABETES MELLITUS
     Route: 048
     Dates: end: 20060615
  6. NORVASC [Suspect]
     Indication: ESSENTIAL HYPERTENSION
     Route: 048
     Dates: end: 20060615
  7. AZATHIOPRINE [Suspect]
     Route: 048
     Dates: end: 20060615
  8. NOTEN [Suspect]
     Indication: ESSENTIAL HYPERTENSION
     Route: 048
     Dates: end: 20060615
  9. ENDEP [Suspect]
     Indication: DEPRESSION
     Route: 048
     Dates: end: 20060615

REACTIONS (4)
  - HYPOGLYCAEMIA [None]
  - PRURITUS [None]
  - RASH MACULO-PAPULAR [None]
  - RENAL FAILURE [None]
